FAERS Safety Report 15221772 (Version 1)
Quarter: 2018Q3

REPORT INFORMATION
  Report Type: Spontaneous
  Country: US (occurrence: US)
  Receive Date: 20180705
  Receipt Date: 20180705
  Transmission Date: 20181010
  Serious: Yes (Hospitalization)
  Sender: FDA-Public Use
  Company Number: None

PATIENT
  Age: 45 Year
  Sex: Female
  Weight: 59.1 kg

DRUGS (3)
  1. COPANLISIB. [Suspect]
     Active Substance: COPANLISIB
  2. GEMCITABINE [Suspect]
     Active Substance: GEMCITABINE\GEMCITABINE HYDROCHLORIDE
  3. CISPLATIN. [Suspect]
     Active Substance: CISPLATIN

REACTIONS (1)
  - Jaundice [None]

NARRATIVE: CASE EVENT DATE: 20180703
